FAERS Safety Report 10057920 (Version 1)
Quarter: 2014Q2

REPORT INFORMATION
  Report Type: Spontaneous
  Country: US (occurrence: None)
  Receive Date: 20140403
  Receipt Date: 20140403
  Transmission Date: 20141212
  Serious: Yes (Disabling)
  Sender: FDA-Public Use
  Company Number: None

PATIENT
  Age: 69 Year
  Sex: Male
  Weight: 111.13 kg

DRUGS (1)
  1. DULOXETINE [Suspect]
     Indication: DEPRESSION
     Dosage: 1 PILL/DAILY, ONCE DAILY, TAKEN BY MOUTH
     Route: 048
     Dates: start: 20140106, end: 20140401

REACTIONS (6)
  - Disturbance in attention [None]
  - Memory impairment [None]
  - Language disorder [None]
  - Dizziness [None]
  - Drug effect decreased [None]
  - Product substitution issue [None]
